FAERS Safety Report 20878321 (Version 1)
Quarter: 2022Q2

REPORT INFORMATION
  Report Type: Spontaneous
  Country: JP (occurrence: JP)
  Receive Date: 20220526
  Receipt Date: 20220526
  Transmission Date: 20220721
  Serious: No
  Sender: FDA-Public Use
  Company Number: JP-GLAXOSMITHKLINE-JP2022JPN080685

PATIENT

DRUGS (6)
  1. SOTROVIMAB [Suspect]
     Active Substance: SOTROVIMAB
     Dosage: UNK
  2. CALONAL [Suspect]
     Active Substance: ACETAMINOPHEN
     Indication: Leiomyoma
     Dosage: PRN
     Route: 048
     Dates: start: 20220123
  3. CALONAL [Suspect]
     Active Substance: ACETAMINOPHEN
     Indication: Pain
  4. DEXTROMETHORPHAN HYDROBROMIDE [Suspect]
     Active Substance: DEXTROMETHORPHAN HYDROBROMIDE
     Indication: COVID-19
     Dosage: PRN
     Route: 048
     Dates: start: 20220221
  5. DEXTROMETHORPHAN HYDROBROMIDE [Suspect]
     Active Substance: DEXTROMETHORPHAN HYDROBROMIDE
     Indication: Cough
  6. FEXOFENADINE [Suspect]
     Active Substance: FEXOFENADINE HYDROCHLORIDE
     Indication: Rhinorrhoea
     Dosage: 120 MG
     Route: 048
     Dates: start: 20220221, end: 20220225

REACTIONS (1)
  - Exposure during pregnancy [Unknown]
